FAERS Safety Report 16457260 (Version 1)
Quarter: 2019Q2

REPORT INFORMATION
  Report Type: Spontaneous
  Country: BE (occurrence: BE)
  Receive Date: 20190620
  Receipt Date: 20190620
  Transmission Date: 20190711
  Serious: Yes (Disabling, Other)
  Sender: FDA-Public Use
  Company Number: BE-TAKEDA-2014TUS002835

PATIENT
  Age: 64 Year
  Sex: Male
  Weight: 92 kg

DRUGS (6)
  1. ADENURIC [Suspect]
     Active Substance: FEBUXOSTAT
     Dosage: UNK
     Route: 065
     Dates: end: 20190310
  2. PIROMED [Concomitant]
     Indication: POLYARTHRITIS
  3. PARACETAMOL [Concomitant]
     Active Substance: ACETAMINOPHEN
     Indication: HEADACHE
     Dosage: 1 GRAM, QD
     Route: 048
     Dates: start: 20140305, end: 20140312
  4. NEXIAM                             /01479302/ [Concomitant]
     Active Substance: ESOMEPRAZOLE MAGNESIUM
     Indication: GASTROOESOPHAGEAL REFLUX DISEASE
     Dosage: 20 MILLIGRAM, QD
     Route: 048
     Dates: start: 201112, end: 20140315
  5. ADENURIC [Suspect]
     Active Substance: FEBUXOSTAT
     Indication: GOUT
     Dosage: UNK
     Route: 048
     Dates: start: 201311, end: 20140307
  6. PIROMED [Concomitant]
     Indication: INFLAMMATION
     Dosage: 20 MILLIGRAM, QD
     Route: 048
     Dates: start: 20140305, end: 20140312

REACTIONS (8)
  - Erythema [Recovered/Resolved with Sequelae]
  - Malaise [Recovered/Resolved with Sequelae]
  - Pain [Recovered/Resolved with Sequelae]
  - Polyarthritis [Recovered/Resolved]
  - Decreased appetite [Recovered/Resolved with Sequelae]
  - Inflammatory marker increased [Recovered/Resolved]
  - Headache [Recovered/Resolved with Sequelae]
  - Flushing [Recovered/Resolved with Sequelae]

NARRATIVE: CASE EVENT DATE: 2014
